FAERS Safety Report 16320704 (Version 1)
Quarter: 2019Q2

REPORT INFORMATION
  Report Type: Spontaneous
  Country: IT (occurrence: IT)
  Receive Date: 20190516
  Receipt Date: 20190516
  Transmission Date: 20190711
  Serious: Yes (Hospitalization)
  Sender: FDA-Public Use
  Company Number: IT-TEVA-2019-IT-1050003

PATIENT
  Age: 88 Year
  Sex: Female
  Weight: 60 kg

DRUGS (5)
  1. FLUCONAZOLE. [Suspect]
     Active Substance: FLUCONAZOLE
     Indication: SKIN CANDIDA
     Route: 048
     Dates: start: 20190409, end: 20190416
  2. PANTOPRAZOLE [Concomitant]
     Active Substance: PANTOPRAZOLE
     Indication: DYSPEPSIA
     Route: 048
     Dates: start: 20190413, end: 20190426
  3. CEFTRIAXONE. [Suspect]
     Active Substance: CEFTRIAXONE
     Indication: RESPIRATORY TRACT INFECTION
     Route: 042
     Dates: start: 20190413, end: 20190416
  4. AZITHROMYCIN ANHYDROUS. [Concomitant]
     Active Substance: AZITHROMYCIN ANHYDROUS
     Indication: RESPIRATORY TRACT INFECTION
     Route: 048
     Dates: start: 20190413, end: 20190417
  5. CLEXANE [Suspect]
     Active Substance: ENOXAPARIN SODIUM
     Indication: THROMBOSIS PROPHYLAXIS
     Route: 058
     Dates: start: 20190413, end: 20190416

REACTIONS (1)
  - Erythema multiforme [Unknown]

NARRATIVE: CASE EVENT DATE: 20190416
